FAERS Safety Report 9398792 (Version 1)
Quarter: 2013Q3

REPORT INFORMATION
  Report Type: Spontaneous
  Country: FR (occurrence: FR)
  Receive Date: 20130712
  Receipt Date: 20130712
  Transmission Date: 20140515
  Serious: Yes (Other)
  Sender: FDA-Public Use
  Company Number: FR-TEVA-417402ISR

PATIENT
  Age: 82 Year
  Sex: Female

DRUGS (5)
  1. FUROSEMIDE TEVA 40 MG, SCORED TABLET [Suspect]
     Route: 048
     Dates: start: 20130604, end: 20130606
  2. CORDARONE [Concomitant]
  3. AMLODIPINE [Concomitant]
  4. CARDENSIEL [Concomitant]
  5. PR?VISCAN [Concomitant]

REACTIONS (2)
  - Hallucination [Not Recovered/Not Resolved]
  - Depressed level of consciousness [Recovering/Resolving]
